FAERS Safety Report 22855988 (Version 9)
Quarter: 2025Q3

REPORT INFORMATION
  Report Type: Spontaneous
  Country: US (occurrence: US)
  Receive Date: 20230823
  Receipt Date: 20250827
  Transmission Date: 20251021
  Serious: Yes (Life-Threatening, Other)
  Sender: RANBAXY
  Company Number: US-SUN PHARMACEUTICAL INDUSTRIES LTD-2023R1-405210

PATIENT
  Age: 87 Year
  Sex: Female

DRUGS (3)
  1. DILTIAZEM [Suspect]
     Active Substance: DILTIAZEM
     Indication: Cardiac disorder
     Dosage: UNK UNK, DAILY
     Route: 065
     Dates: start: 202307, end: 20230727
  2. DILTIAZEM [Suspect]
     Active Substance: DILTIAZEM
     Indication: Hypertension
     Dosage: 180 MILLIGRAM, DAILY
     Route: 048
     Dates: start: 20230828
  3. METOPROLOL [Concomitant]
     Active Substance: METOPROLOL
     Indication: Hypertension
     Route: 065

REACTIONS (9)
  - Anaphylactic shock [Unknown]
  - Haemothorax [Unknown]
  - Dysphonia [Unknown]
  - Rash [Not Recovered/Not Resolved]
  - Urticaria [Not Recovered/Not Resolved]
  - Therapy cessation [Unknown]
  - Hypersensitivity [Unknown]
  - Emotional distress [Not Recovered/Not Resolved]
  - Agitation [Not Recovered/Not Resolved]

NARRATIVE: CASE EVENT DATE: 20230701
